FAERS Safety Report 4690433-0 (Version None)
Quarter: 2005Q2

REPORT INFORMATION
  Report Type: 
  Country: None (occurrence: None)
  Receive Date: 20050613
  Receipt Date: 20050524
  Transmission Date: 20051028
  Serious: Yes (Hospitalization)
  Sender: FDA-Public Use
  Company Number: 2005BI010466

PATIENT
  Age: 56 Year
  Sex: Female
  Weight: 117.9352 kg

DRUGS (3)
  1. AVONEX [Suspect]
     Indication: MULTIPLE SCLEROSIS
     Dosage: 30 UG;QW; IM
     Route: 030
     Dates: start: 19981001, end: 20030101
  2. AVONEX [Suspect]
     Indication: MULTIPLE SCLEROSIS
     Dosage: 30 UG; QW; IM
     Route: 030
     Dates: start: 20030101
  3. BACLOFEN [Concomitant]

REACTIONS (13)
  - DIABETES MELLITUS [None]
  - EYE DISORDER [None]
  - FALL [None]
  - FLUID RETENTION [None]
  - HYPERTENSION [None]
  - HYPOTHYROIDISM [None]
  - LOWER LIMB FRACTURE [None]
  - MEMORY IMPAIRMENT [None]
  - MICTURITION URGENCY [None]
  - OSTEOPOROSIS [None]
  - POLLAKIURIA [None]
  - STOMACH DISCOMFORT [None]
  - VISUAL ACUITY REDUCED [None]
